FAERS Safety Report 25321238 (Version 3)
Quarter: 2025Q2

REPORT INFORMATION
  Report Type: Report from Study
  Country: US (occurrence: US)
  Receive Date: 20250515
  Receipt Date: 20250624
  Transmission Date: 20250716
  Serious: Yes (Hospitalization, Other)
  Sender: AMGEN
  Company Number: US-HORIZON THERAPEUTICS-HZN-2022-003698

PATIENT
  Age: 61 Year
  Sex: Male

DRUGS (3)
  1. TEPEZZA [Suspect]
     Active Substance: TEPROTUMUMAB-TRBW
     Indication: Toxic goitre
     Route: 042
     Dates: start: 20220426
  2. TEPEZZA [Suspect]
     Active Substance: TEPROTUMUMAB-TRBW
     Route: 042
     Dates: start: 2022
  3. TEPEZZA [Suspect]
     Active Substance: TEPROTUMUMAB-TRBW
     Route: 042

REACTIONS (13)
  - Blood pressure increased [Unknown]
  - Exophthalmos [Unknown]
  - Pain [Unknown]
  - Ageusia [Unknown]
  - Anosmia [Unknown]
  - Headache [Unknown]
  - Fatigue [Unknown]
  - Blood glucose increased [Unknown]
  - Muscle spasms [Unknown]
  - Sleep disorder [Unknown]
  - Off label use [Unknown]
  - Nausea [Unknown]
  - Vomiting [Unknown]

NARRATIVE: CASE EVENT DATE: 20220101
